FAERS Safety Report 20089334 (Version 1)
Quarter: 2021Q4

REPORT INFORMATION
  Report Type: Spontaneous
  Country: GB (occurrence: GB)
  Receive Date: 20211119
  Receipt Date: 20211119
  Transmission Date: 20220304
  Serious: Yes (Other)
  Sender: FDA-Public Use
  Company Number: GB-Ipsen Biopharmaceuticals, Inc.-2021-28767

PATIENT
  Age: 39 Year
  Sex: Male

DRUGS (6)
  1. LANREOTIDE ACETATE [Suspect]
     Active Substance: LANREOTIDE ACETATE
     Indication: Acromegaly
     Dosage: DOSE NOT REPORTED
     Route: 065
     Dates: start: 200911, end: 201002
  2. CABERGOLINE [Concomitant]
     Active Substance: CABERGOLINE
     Dates: start: 201007, end: 201012
  3. TEMOZOLOMIDE [Concomitant]
     Active Substance: TEMOZOLOMIDE
     Dates: start: 201007
  4. HYDROCORTISONE [Concomitant]
     Active Substance: HYDROCORTISONE
  5. DESMOPRESSIN [Concomitant]
     Active Substance: DESMOPRESSIN
  6. MORPHINE SULFATE [Concomitant]
     Active Substance: MORPHINE SULFATE

REACTIONS (7)
  - Disease progression [Unknown]
  - Malignant neoplasm progression [Unknown]
  - Cerebral haemorrhage [Unknown]
  - Dysphagia [Unknown]
  - Epistaxis [Unknown]
  - Confusional state [Unknown]
  - Drug ineffective [Unknown]

NARRATIVE: CASE EVENT DATE: 20100101
